FAERS Safety Report 14163119 (Version 3)
Quarter: 2018Q1

REPORT INFORMATION
  Report Type: Report from Study
  Country: None (occurrence: US)
  Receive Date: 20171107
  Receipt Date: 20180119
  Transmission Date: 20180508
  Serious: Yes (Hospitalization, Other)
  Sender: FDA-Public Use
  Company Number: US-ABBVIE-17K-163-2142435-00

PATIENT
  Age: 46 Year
  Sex: Male
  Weight: 138.47 kg

DRUGS (9)
  1. CRESTOR [Concomitant]
     Active Substance: ROSUVASTATIN CALCIUM
     Indication: BLOOD CHOLESTEROL
  2. HUMIRA [Suspect]
     Active Substance: ADALIMUMAB
     Route: 058
     Dates: start: 201708, end: 201709
  3. SULFASALAZINE. [Concomitant]
     Active Substance: SULFASALAZINE
     Indication: PRODUCT USED FOR UNKNOWN INDICATION
  4. HYDROCODONE [Concomitant]
     Active Substance: HYDROCODONE
     Indication: PROCEDURAL PAIN
     Dates: start: 201707, end: 201707
  5. FOLIC ACID. [Concomitant]
     Active Substance: FOLIC ACID
     Indication: PRODUCT USED FOR UNKNOWN INDICATION
  6. ELETRIPTAN. [Concomitant]
     Active Substance: ELETRIPTAN
     Indication: MIGRAINE
     Dates: start: 2017
  7. FLONASE [Concomitant]
     Active Substance: FLUTICASONE PROPIONATE
     Indication: PRODUCT USED FOR UNKNOWN INDICATION
  8. ASTELIN [Concomitant]
     Active Substance: AZELASTINE HYDROCHLORIDE
     Indication: PRODUCT USED FOR UNKNOWN INDICATION
  9. HUMIRA [Suspect]
     Active Substance: ADALIMUMAB
     Indication: RHEUMATOID ARTHRITIS
     Route: 058
     Dates: start: 201704, end: 201707

REACTIONS (33)
  - Ventricular extrasystoles [Recovering/Resolving]
  - Binocular eye movement disorder [Not Recovered/Not Resolved]
  - Rheumatoid arthritis [Not Recovered/Not Resolved]
  - Exostosis [Recovered/Resolved]
  - Cartilage injury [Recovered/Resolved]
  - Joint instability [Not Recovered/Not Resolved]
  - Neuropathy peripheral [Unknown]
  - Diplopia [Not Recovered/Not Resolved]
  - Joint instability [Recovered/Resolved]
  - Sinus polyp [Recovered/Resolved]
  - Vertigo [Recovering/Resolving]
  - Incisional hernia [Recovered/Resolved]
  - Abdominal adhesions [Recovered/Resolved]
  - Optic nerve disorder [Unknown]
  - Dizziness [Recovering/Resolving]
  - Palpitations [Recovering/Resolving]
  - Migraine [Recovering/Resolving]
  - Dyspnoea [Recovering/Resolving]
  - Pain [Recovering/Resolving]
  - Sinusitis [Recovering/Resolving]
  - Cyst [Recovered/Resolved]
  - Paranasal cyst [Recovered/Resolved]
  - Tendon rupture [Not Recovered/Not Resolved]
  - Procedural pain [Unknown]
  - Rotator cuff syndrome [Recovered/Resolved]
  - Arthritis [Not Recovered/Not Resolved]
  - Sinus disorder [Recovered/Resolved]
  - Carpal tunnel syndrome [Not Recovered/Not Resolved]
  - Asthenia [Recovering/Resolving]
  - Sinusitis [Recovered/Resolved]
  - Bone erosion [Not Recovered/Not Resolved]
  - Chondromalacia [Not Recovered/Not Resolved]
  - Chest pain [Recovering/Resolving]

NARRATIVE: CASE EVENT DATE: 2017
